FAERS Safety Report 23849785 (Version 6)
Quarter: 2025Q3

REPORT INFORMATION
  Report Type: Spontaneous
  Country: EU (occurrence: EU)
  Receive Date: 20240513
  Receipt Date: 20250804
  Transmission Date: 20251021
  Serious: Yes (Life-Threatening, Disabling, Other)
  Sender: ALEXION PHARMACEUTICALS
  Company Number: 2024A110834

PATIENT
  Age: 33 Year
  Sex: Female
  Weight: 86 kg

DRUGS (22)
  1. ESOMEPRAZOLE [Suspect]
     Active Substance: ESOMEPRAZOLE
     Indication: Abdominal discomfort
     Dosage: 40 MILLIGRAM, 1/DAY
  2. ASTRAZENECA COVID-19 VACCINE [Suspect]
     Active Substance: AZD-1222
     Indication: Product used for unknown indication
  3. ELIQUIS [Suspect]
     Active Substance: APIXABAN
     Indication: Thrombosis
     Dosage: 5 MILLIGRAM, 2/DAY
  4. ELIQUIS [Suspect]
     Active Substance: APIXABAN
     Indication: Phlebitis
     Dosage: 5 MILLIGRAM, 2/DAY
  5. ELIQUIS [Suspect]
     Active Substance: APIXABAN
     Dosage: 5 MILLIGRAM, 2/DAY
  6. ELIQUIS [Suspect]
     Active Substance: APIXABAN
     Dosage: 5 MILLIGRAM, 2/DAY
  7. LYRICA [Suspect]
     Active Substance: PREGABALIN
     Indication: Facial pain
     Dosage: 600 MILLIGRAM, 2/DAY
  8. LYRICA [Suspect]
     Active Substance: PREGABALIN
     Dosage: 600 MILLIGRAM, 2/DAY
  9. LYRICA [Suspect]
     Active Substance: PREGABALIN
     Dosage: 600 MILLIGRAM, 2/DAY
  10. LYRICA [Suspect]
     Active Substance: PREGABALIN
     Dosage: 600 MILLIGRAM, 2/DAY
  11. RIVOTRIL [Suspect]
     Active Substance: CLONAZEPAM
     Indication: Facial pain
     Dosage: UNK UNK, 1/DAY
  12. RIVOTRIL [Suspect]
     Active Substance: CLONAZEPAM
  13. RIVOTRIL [Suspect]
     Active Substance: CLONAZEPAM
  14. RIVOTRIL [Suspect]
     Active Substance: CLONAZEPAM
  15. RIVOTRIL [Suspect]
     Active Substance: CLONAZEPAM
  16. TRAMADOL [Concomitant]
     Active Substance: TRAMADOL
     Indication: Pain
     Dosage: 200 MILLIGRAM, 2/DAY
  17. TRAMADOL [Concomitant]
     Active Substance: TRAMADOL
     Dosage: 200 MILLIGRAM, 2/DAY
  18. TRAMADOL [Concomitant]
     Active Substance: TRAMADOL
     Dosage: 200 MILLIGRAM, 2/DAY
  19. TRAMADOL [Concomitant]
     Active Substance: TRAMADOL
     Dosage: 200 MILLIGRAM, 2/DAY
  20. TEMESTA [Concomitant]
     Indication: Insomnia
  21. DESOBEL [Concomitant]
     Indication: Ill-defined disorder
     Dosage: 30 MILLIGRAM, 1/DAY
  22. DESOBEL [Concomitant]
     Dosage: 30 MILLIGRAM, 1/DAY

REACTIONS (7)
  - Staphylococcal skin infection [Unknown]
  - Phlebitis [Not Recovered/Not Resolved]
  - Thrombosis [Not Recovered/Not Resolved]
  - Arthropathy [Unknown]
  - Intervertebral disc protrusion [Unknown]
  - Staphylococcal infection [Unknown]
  - Staphylococcal infection [Unknown]

NARRATIVE: CASE EVENT DATE: 20231012
